FAERS Safety Report 20763998 (Version 1)
Quarter: 2022Q2

REPORT INFORMATION
  Report Type: Other
  Country: None (occurrence: US)
  Receive Date: 20220428
  Receipt Date: 20220428
  Transmission Date: 20220721
  Serious: No
  Sender: FDA-Public Use
  Company Number: US-Ascent Pharmaceuticals, Inc.-2128263

PATIENT
  Age: 75 Year
  Sex: Female
  Weight: 53.182 kg

DRUGS (1)
  1. HYDROCODONE BITARTRATE AND ACETAMINOPHEN [Suspect]
     Active Substance: ACETAMINOPHEN\HYDROCODONE BITARTRATE
     Indication: Analgesic therapy
     Route: 048
     Dates: start: 20220211

REACTIONS (5)
  - Drug ineffective [Unknown]
  - Ear pain [Not Recovered/Not Resolved]
  - Feeling cold [Not Recovered/Not Resolved]
  - Vision blurred [Not Recovered/Not Resolved]
  - Headache [Not Recovered/Not Resolved]
